FAERS Safety Report 15208827 (Version 1)
Quarter: 2018Q3

REPORT INFORMATION
  Report Type: Spontaneous
  Country: US (occurrence: US)
  Receive Date: 20180629
  Receipt Date: 20180629
  Transmission Date: 20181010
  Serious: No
  Sender: FDA-Public Use
  Company Number: None

PATIENT
  Age: 12 Week
  Sex: Male
  Weight: 2 kg

DRUGS (6)
  1. DIURIL [Concomitant]
     Active Substance: CHLOROTHIAZIDE
     Dates: start: 20180323, end: 20180327
  2. POLYVISOL WITH IRON [Concomitant]
     Dates: start: 20180312, end: 20180629
  3. GLYCERIN. [Concomitant]
     Active Substance: GLYCERIN
     Dates: start: 20180325, end: 20180325
  4. DEXAMETHASONE. [Suspect]
     Active Substance: DEXAMETHASONE
     Indication: BORDERLINE PERSONALITY DISORDER
     Route: 048
     Dates: start: 20180325, end: 20180331
  5. FUROSEMIDE. [Concomitant]
     Active Substance: FUROSEMIDE
     Dates: start: 20180325, end: 20180629
  6. DIAMOX SEQUELS [Concomitant]
     Active Substance: ACETAZOLAMIDE
     Dates: start: 20180325, end: 20180325

REACTIONS (1)
  - Hypertension [None]

NARRATIVE: CASE EVENT DATE: 20180328
